FAERS Safety Report 5255783-8 (Version None)
Quarter: 2007Q1

REPORT INFORMATION
  Report Type: 
  Country: None (occurrence: None)
  Receive Date: 20070301
  Receipt Date: 20070213
  Transmission Date: 20070707
  Serious: Yes (Other)
  Sender: FDA-Public Use
  Company Number: 02100-EUR-07-0017

PATIENT
  Age: 81 Year
  Sex: Male

DRUGS (1)
  1. CILOSTAZOL [Suspect]
     Indication: PERIPHERAL ARTERIAL OCCLUSIVE DISEASE
     Dosage: 200 MG ORAL
     Route: 048
     Dates: start: 20070126, end: 20070130

REACTIONS (3)
  - BURNING SENSATION [None]
  - FEELING ABNORMAL [None]
  - PAIN IN EXTREMITY [None]
